FAERS Safety Report 17216536 (Version 1)
Quarter: 2019Q4

REPORT INFORMATION
  Report Type: Spontaneous
  Country: US (occurrence: US)
  Receive Date: 20191230
  Receipt Date: 20191230
  Transmission Date: 20200122
  Serious: Yes (Hospitalization, Disabling, Other)
  Sender: FDA-Public Use
  Company Number: US-STASON PHARMACEUTICALS, INC.-2078342

PATIENT
  Age: 15 Year
  Sex: Female
  Weight: 82.1 kg

DRUGS (1)
  1. MERCAPTOPURINE. [Suspect]
     Active Substance: MERCAPTOPURINE

REACTIONS (4)
  - Febrile neutropenia [None]
  - Sepsis [None]
  - Bacterial infection [None]
  - Anorectal cellulitis [None]
